FAERS Safety Report 7741274-9 (Version None)
Quarter: 2011Q3

REPORT INFORMATION
  Report Type: 
  Country: None (occurrence: None)
  Receive Date: 20110909
  Receipt Date: 20110831
  Transmission Date: 20111222
  Serious: Yes (Other)
  Sender: FDA-Public Use
  Company Number: US-US-EMD SERONO, INC.-7015382

PATIENT
  Sex: Female

DRUGS (3)
  1. ORAL CONTRACEPTIVE [Concomitant]
     Indication: CONTRACEPTION
     Route: 048
  2. NAPROXEN (ALEVE) [Concomitant]
     Indication: PREMEDICATION
     Dates: start: 20100101
  3. REBIF [Suspect]
     Indication: MULTIPLE SCLEROSIS
     Route: 058
     Dates: start: 20100604, end: 20110101

REACTIONS (7)
  - INJECTION SITE PAIN [None]
  - MACULAR DEGENERATION [None]
  - OPTIC NEURITIS [None]
  - INJECTION SITE SWELLING [None]
  - INJECTION SITE DISCOLOURATION [None]
  - DISEASE PROGRESSION [None]
  - HEADACHE [None]
